FAERS Safety Report 7838464-3 (Version None)
Quarter: 2011Q4

REPORT INFORMATION
  Report Type: 
  Country: None (occurrence: None)
  Receive Date: 20111024
  Receipt Date: 20111019
  Transmission Date: 20120403
  Serious: Yes (Hospitalization)
  Sender: FDA-Public Use
  Company Number: FR-MERCK-1110FRA00083

PATIENT
  Age: 50 Year
  Sex: Male

DRUGS (13)
  1. MYCOPHENOLATE MOFETIL [Concomitant]
     Route: 065
  2. JANUVIA [Suspect]
     Route: 048
     Dates: end: 20110809
  3. REPAGLINIDE [Suspect]
     Route: 048
     Dates: start: 20110819
  4. PREDNISONE [Concomitant]
     Route: 065
  5. OXYCODONE HCL [Suspect]
     Route: 065
     Dates: start: 20110713, end: 20110809
  6. REPAGLINIDE [Suspect]
     Route: 048
     Dates: end: 20110809
  7. ATORVASTATIN CALCIUM [Suspect]
     Route: 048
     Dates: end: 20110809
  8. ALLOPURINOL [Suspect]
     Route: 048
     Dates: end: 20110809
  9. LERCANIDIPINE [Suspect]
     Route: 048
     Dates: end: 20110809
  10. ENALAPRIL MALEATE AND HYDROCHLOROTHIAZIDE [Suspect]
     Route: 048
     Dates: end: 20110809
  11. RILMENIDINE [Suspect]
     Route: 048
     Dates: end: 20110809
  12. BETAXOLOL HCL [Suspect]
     Route: 048
     Dates: end: 20110809
  13. TACROLIMUS [Concomitant]
     Route: 065

REACTIONS (5)
  - RENAL FAILURE [None]
  - DEHYDRATION [None]
  - PANCREATIC ENZYMES INCREASED [None]
  - INTESTINAL OBSTRUCTION [None]
  - UNDERDOSE [None]
